FAERS Safety Report 25272375 (Version 1)
Quarter: 2025Q2

REPORT INFORMATION
  Report Type: Spontaneous
  Country: AU (occurrence: AU)
  Receive Date: 20250506
  Receipt Date: 20250506
  Transmission Date: 20250716
  Serious: Yes (Hospitalization, Other)
  Sender: Kenvue
  Company Number: None

PATIENT

DRUGS (10)
  1. ACETAMINOPHEN [Suspect]
     Active Substance: ACETAMINOPHEN
     Indication: Plasma cell myeloma
     Route: 048
     Dates: start: 20221121, end: 20241024
  2. DARATUMUMAB [Suspect]
     Active Substance: DARATUMUMAB
     Indication: Plasma cell myeloma
     Dosage: 1800 MILLIGRAM, ONCE IN A MONTH
     Route: 058
     Dates: start: 20221121, end: 20240912
  3. DEXAMETHASONE [Suspect]
     Active Substance: DEXAMETHASONE
     Indication: Plasma cell myeloma
     Route: 048
     Dates: start: 20221121, end: 20241024
  4. ELRANATAMAB [Suspect]
     Active Substance: ELRANATAMAB
     Indication: Plasma cell myeloma
     Dosage: 76 MILLIGRAM, ONCE IN A MONTH
     Route: 058
     Dates: start: 20221121
  5. ELIQUIS [Concomitant]
     Active Substance: APIXABAN
     Indication: Thrombosis prophylaxis
     Dosage: 5 MILLIGRAM, ONCE A DAY
     Route: 048
     Dates: start: 20241020
  6. LORATADINE [Concomitant]
     Active Substance: LORATADINE
     Indication: Plasma cell myeloma
     Route: 048
     Dates: start: 20221121, end: 20241024
  7. ZOLEDRONIC ACID [Concomitant]
     Active Substance: ZOLEDRONIC ACID
     Indication: Prophylaxis
     Route: 042
     Dates: start: 20231102
  8. SILDENAFIL [Concomitant]
     Active Substance: SILDENAFIL
     Indication: Erectile dysfunction
     Route: 048
     Dates: start: 20230928
  9. SYSTANE LUBRICANT [Concomitant]
     Active Substance: POLYETHYLENE GLYCOL 400\PROPYLENE GLYCOL
     Indication: Prophylaxis
     Dosage: 4 DOSAGE FORM, ONCE A DAY
     Route: 061
     Dates: start: 20240704
  10. SULFAMETHOXAZOLE\TRIMETHOPRIM [Concomitant]
     Active Substance: SULFAMETHOXAZOLE\TRIMETHOPRIM
     Indication: Antifungal prophylaxis
     Dosage: 4 DOSAGE FORM, ONCE IN A WEEK
     Route: 048
     Dates: start: 20230501

REACTIONS (1)
  - Bronchitis bacterial [Recovered/Resolved]

NARRATIVE: CASE EVENT DATE: 20250301
